FAERS Safety Report 17421251 (Version 1)
Quarter: 2020Q1

REPORT INFORMATION
  Report Type: Report from Study
  Country: FR (occurrence: FR)
  Receive Date: 20200214
  Receipt Date: 20200214
  Transmission Date: 20200409
  Serious: Yes (Death)
  Sender: FDA-Public Use
  Company Number: FR-PFIZER INC-2020055155

PATIENT

DRUGS (3)
  1. CURASPON [Concomitant]
     Dosage: UNK
  2. LIPIODOL [Concomitant]
     Active Substance: ETHIODIZED OIL
     Dosage: 5-10 ML OF IODIZED OIL
  3. ADRIBLASTINA [Suspect]
     Active Substance: DOXORUBICIN HYDROCHLORIDE
     Indication: HEPATOCELLULAR CARCINOMA
     Dosage: 50 MG OF INJECTABLE LYOPHILIZED DOXORUBICIN

REACTIONS (1)
  - Arrhythmia [Fatal]
